FAERS Safety Report 14701823 (Version 1)
Quarter: 2018Q1

REPORT INFORMATION
  Report Type: Report from Study
  Country: US (occurrence: US)
  Receive Date: 20180331
  Receipt Date: 20180331
  Transmission Date: 20180509
  Serious: No
  Sender: FDA-Public Use
  Company Number: PHEH2018US012398

PATIENT
  Sex: Male

DRUGS (1)
  1. COSENTYX [Suspect]
     Active Substance: SECUKINUMAB
     Indication: PRODUCT USED FOR UNKNOWN INDICATION
     Route: 065

REACTIONS (7)
  - Cough [Unknown]
  - Influenza [Unknown]
  - Feeling of body temperature change [Unknown]
  - Sleep apnoea syndrome [Unknown]
  - Productive cough [Unknown]
  - Nasopharyngitis [Unknown]
  - Pyrexia [Unknown]
